FAERS Safety Report 8472212-1 (Version None)
Quarter: 2012Q2

REPORT INFORMATION
  Report Type: 
  Country: None (occurrence: None)
  Receive Date: 20120627
  Receipt Date: 20120622
  Transmission Date: 20120825
  Serious: Yes (Death)
  Sender: FDA-Public Use
  Company Number: US-ELI_LILLY_AND_COMPANY-US201106004149

PATIENT
  Sex: Female
  Weight: 43.991 kg

DRUGS (2)
  1. DIURETICS [Concomitant]
     Indication: OEDEMA PERIPHERAL
     Route: 065
  2. FORTEO [Suspect]
     Indication: OSTEOPOROSIS
     Dosage: 20 UG, QD
     Route: 058

REACTIONS (4)
  - SCLERODERMA [None]
  - SMALL INTESTINAL OBSTRUCTION [None]
  - OEDEMA PERIPHERAL [None]
  - INFECTION [None]
